FAERS Safety Report 9927306 (Version 2)
Quarter: 2014Q1

REPORT INFORMATION
  Report Type: Report from Study
  Country: CA (occurrence: CA)
  Receive Date: 20140226
  Receipt Date: 20140226
  Transmission Date: 20141002
  Serious: Yes (Hospitalization)
  Sender: FDA-Public Use
  Company Number: PHHY2013CA026399

PATIENT
  Age: 73 Year
  Sex: Male

DRUGS (4)
  1. GLEEVEC [Suspect]
     Indication: CHRONIC MYELOID LEUKAEMIA
     Dosage: 400 MG, QD
     Route: 048
     Dates: start: 201211, end: 2013
  2. ATIVAN [Concomitant]
     Dosage: UNK UKN, PRN
  3. CELEXA [Concomitant]
     Dosage: 10 MG, QD
  4. SALMON OIL [Concomitant]
     Dosage: 3 DF, QD

REACTIONS (7)
  - Fall [Unknown]
  - Gait disturbance [Unknown]
  - Abasia [Unknown]
  - Concomitant disease progression [Unknown]
  - Fatigue [Unknown]
  - Arthritis [Unknown]
  - Back pain [Unknown]
